FAERS Safety Report 5880844-X (Version None)
Quarter: 2008Q3

REPORT INFORMATION
  Report Type: 
  Country: None (occurrence: None)
  Receive Date: 20080912
  Receipt Date: 20080611
  Transmission Date: 20090109
  Serious: No
  Sender: FDA-Public Use
  Company Number: US-ABBOTT-08P-163-0456715-00

PATIENT
  Sex: Female
  Weight: 65.376 kg

DRUGS (7)
  1. HUMIRA [Suspect]
     Indication: CROHN'S DISEASE
     Dosage: STARTER DOSE
     Route: 058
     Dates: start: 20070501, end: 20070501
  2. HUMIRA [Suspect]
     Route: 058
  3. HUMIRA [Suspect]
  4. PURINTHOL [Concomitant]
     Indication: CROHN'S DISEASE
     Dosage: 75 MG DAILY
     Route: 048
     Dates: start: 20030101
  5. VICODIN [Concomitant]
     Indication: PAIN
     Dosage: 750-1500MG DAILY AS NEEDED
     Route: 048
  6. VITAMIN [Concomitant]
     Indication: VITAMIN SUPPLEMENTATION
     Dosage: 1 PILL DAILY
     Route: 048
  7. VITAMIN [Concomitant]
     Dosage: 1 PILL TWICE DAILY
     Route: 048

REACTIONS (2)
  - ACCIDENTAL EXPOSURE [None]
  - INJECTION SITE IRRITATION [None]
